FAERS Safety Report 11152287 (Version 1)
Quarter: 2015Q2

REPORT INFORMATION
  Report Type: Spontaneous
  Country: US (occurrence: US)
  Receive Date: 20150601
  Receipt Date: 20150601
  Transmission Date: 20150821
  Serious: Yes (Hospitalization)
  Sender: FDA-Public Use
  Company Number: US-ELI_LILLY_AND_COMPANY-US201505007818

PATIENT
  Age: 66 Year
  Sex: Female

DRUGS (4)
  1. ALIMTA [Suspect]
     Active Substance: PEMETREXED DISODIUM
     Dosage: UNK, EVERY THREE WEEKS
     Route: 042
     Dates: start: 201502
  2. ALIMTA [Suspect]
     Active Substance: PEMETREXED DISODIUM
     Indication: NON-SMALL CELL LUNG CANCER
     Dosage: UNK UNK, UNKNOWN
     Route: 042
     Dates: start: 201304
  3. HUMULIN MIX [Concomitant]
     Indication: PRODUCT USED FOR UNKNOWN INDICATION
     Dosage: UNK, UNKNOWN
     Route: 065
  4. METFORMIN [Concomitant]
     Active Substance: METFORMIN HYDROCHLORIDE
     Indication: PRODUCT USED FOR UNKNOWN INDICATION
     Dosage: UNK, UNKNOWN
     Route: 065

REACTIONS (6)
  - Erythema [Unknown]
  - Muscle tightness [Unknown]
  - Burning sensation [Unknown]
  - Peripheral swelling [Unknown]
  - Cellulitis [Unknown]
  - Discomfort [Unknown]

NARRATIVE: CASE EVENT DATE: 201410
